FAERS Safety Report 11686509 (Version 2)
Quarter: 2015Q4

REPORT INFORMATION
  Report Type: Report from Study
  Country: ZA (occurrence: ZA)
  Receive Date: 20151030
  Receipt Date: 20151116
  Transmission Date: 20160304
  Serious: Yes (Life-Threatening, Hospitalization, Other)
  Sender: FDA-Public Use
  Company Number: ZA-PFIZER INC-2015365041

PATIENT
  Age: 40 Year
  Sex: Female

DRUGS (20)
  1. PANADO [Suspect]
     Active Substance: ACETAMINOPHEN
     Indication: NON-HODGKIN^S LYMPHOMA
     Dosage: 1000 MG, 4X/DAY (2 TABLETS 6 HOURLY)
     Route: 048
     Dates: start: 20150414
  2. BACTRIM [Concomitant]
     Active Substance: SULFAMETHOXAZOLE\TRIMETHOPRIM
     Dosage: 960 MG, 3 IN 1 WEEK
     Route: 048
     Dates: start: 20150414
  3. EFAVIRENZ [Concomitant]
     Active Substance: EFAVIRENZ
     Dosage: 600 MG, 1X/DAY
     Route: 048
     Dates: start: 20150217
  4. VINCRISTINE [Suspect]
     Active Substance: VINCRISTINE
     Indication: NON-HODGKIN^S LYMPHOMA
     Dosage: 2 MG, 1X/DAY
     Route: 042
     Dates: start: 20150414
  5. RITUXIMAB [Suspect]
     Active Substance: RITUXIMAB
     Indication: NON-HODGKIN^S LYMPHOMA
     Dosage: 585 MG, 1 DOSE (1 IN 1 DAY)
     Route: 042
     Dates: start: 20150414
  6. PREDNISONE. [Suspect]
     Active Substance: PREDNISONE
     Indication: NON-HODGKIN^S LYMPHOMA
     Dosage: 60 MG, 1X/DAY FOR 7-DAYS
     Route: 048
     Dates: start: 20150414
  7. ALLOPURINOL. [Concomitant]
     Active Substance: ALLOPURINOL
     Dosage: 300 MG, 1X/DAY
     Route: 048
     Dates: start: 20150325
  8. AUGMENTIN [Concomitant]
     Active Substance: AMOXICILLIN\CLAVULANATE POTASSIUM
     Dosage: 375 MG, 3X/DAY
     Route: 048
     Dates: start: 20150414, end: 20150419
  9. CYCLOPHOSPHAMIDE. [Suspect]
     Active Substance: CYCLOPHOSPHAMIDE
     Indication: NON-HODGKIN^S LYMPHOMA
     Dosage: 775 MG, 1X/DAY
     Route: 042
     Dates: start: 20150414
  10. PHENERGAN [Suspect]
     Active Substance: PROMETHAZINE HYDROCHLORIDE
     Indication: NON-HODGKIN^S LYMPHOMA
     Dosage: 25 MG, 3X/DAY
     Route: 048
     Dates: start: 20150414
  11. D4T [Concomitant]
     Active Substance: STAVUDINE
     Dosage: 30 MG, 2X/DAY
     Route: 048
     Dates: start: 20150217
  12. ETOPOSIDE. [Suspect]
     Active Substance: ETOPOSIDE
     Indication: NON-HODGKIN^S LYMPHOMA
     Dosage: 125 MG, 1X/DAY
     Route: 042
     Dates: start: 20150414
  13. ADRIAMYCIN [Suspect]
     Active Substance: DOXORUBICIN HYDROCHLORIDE
     Indication: NON-HODGKIN^S LYMPHOMA
     Dosage: 50 MG, 1X/DAY
     Route: 042
     Dates: start: 20150414
  14. PYRIDOXINE [Concomitant]
     Active Substance: PYRIDOXINE
     Dosage: 1X/DAY
     Route: 048
     Dates: start: 20150325, end: 20150426
  15. LANZOR [Concomitant]
     Active Substance: LANSOPRAZOLE
     Dosage: 30 MG, 1X/DAY
     Route: 048
     Dates: start: 20150414
  16. SOLU-CORTEF [Suspect]
     Active Substance: HYDROCORTISONE SODIUM SUCCINATE
     Indication: NON-HODGKIN^S LYMPHOMA
     Dosage: 300 MG, 1X/DAY
     Route: 042
     Dates: start: 20150414
  17. ZOFRAN [Suspect]
     Active Substance: ONDANSETRON HYDROCHLORIDE
     Indication: NON-HODGKIN^S LYMPHOMA
     Dosage: 8 MG, 1X/DAY
     Route: 042
     Dates: start: 20150414
  18. RIFAFOUR [Concomitant]
     Active Substance: ETHAMBUTOL HYDROCHLORIDE\ISONIAZID\PYRAZINAMIDE\RIFAMYCIN
     Dosage: 4 DF, DAILY (TABLET)
     Route: 048
     Dates: start: 20150325, end: 20150426
  19. SPECTRAPAIN [Concomitant]
     Dosage: 2 DF (TABLETS), 3X/DAY
     Route: 048
     Dates: start: 20150414
  20. 3TC [Concomitant]
     Active Substance: LAMIVUDINE
     Dosage: 150 MG, 2X/DAY
     Route: 048
     Dates: start: 20150217

REACTIONS (3)
  - Deep vein thrombosis [Recovered/Resolved]
  - Gastroenteritis [Recovered/Resolved]
  - Neutropenic sepsis [Recovered/Resolved]

NARRATIVE: CASE EVENT DATE: 20150420
